FAERS Safety Report 16788045 (Version 1)
Quarter: 2019Q3

REPORT INFORMATION
  Report Type: Spontaneous
  Country: FR (occurrence: FR)
  Receive Date: 20190909
  Receipt Date: 20190909
  Transmission Date: 20191005
  Serious: Yes (Hospitalization)
  Sender: FDA-Public Use
  Company Number: PHHY2019FR205313

PATIENT
  Age: 75 Year
  Sex: Female
  Weight: 90 kg

DRUGS (3)
  1. MIZOLLEN [Suspect]
     Active Substance: MIZOLASTINE
     Indication: PRODUCT USED FOR UNKNOWN INDICATION
     Dosage: 1 DF, QD
     Route: 048
     Dates: end: 20190718
  2. ZOPHREN [Suspect]
     Active Substance: ONDANSETRON
     Indication: PRODUCT USED FOR UNKNOWN INDICATION
     Dosage: UNK
     Route: 048
  3. SOTALOL HYDROCHLORIDE. [Suspect]
     Active Substance: SOTALOL HYDROCHLORIDE
     Indication: HYPERTENSION
     Dosage: 160 MG, QD
     Route: 048
     Dates: end: 20190718

REACTIONS (2)
  - Torsade de pointes [Recovered/Resolved]
  - Electrocardiogram QT prolonged [Recovered/Resolved]

NARRATIVE: CASE EVENT DATE: 20190718
